FAERS Safety Report 25994232 (Version 2)
Quarter: 2025Q4

REPORT INFORMATION
  Report Type: Report from Study
  Country: US (occurrence: US)
  Receive Date: 20251104
  Receipt Date: 20251117
  Transmission Date: 20260118
  Serious: Yes (Hospitalization, Other)
  Sender: ABBVIE
  Company Number: US-ABBVIE-6525062

PATIENT
  Age: 73 Year
  Sex: Female
  Weight: 73.028 kg

DRUGS (6)
  1. RINVOQ [Suspect]
     Active Substance: UPADACITINIB
     Indication: Rheumatoid arthritis
     Dosage: FORM STRENGTH: 15 MILLIGRAM
     Route: 048
     Dates: start: 2023, end: 20250828
  2. RINVOQ [Suspect]
     Active Substance: UPADACITINIB
     Indication: Rheumatoid arthritis
     Dosage: FORM STRENGTH: 15 MILLIGRAM
     Route: 048
     Dates: start: 20250912
  3. LOSARTAN [Concomitant]
     Active Substance: LOSARTAN
     Indication: Blood pressure measurement
  4. XANAX [Concomitant]
     Active Substance: ALPRAZOLAM
     Indication: Anxiety
  5. OMEPRAZOLE [Concomitant]
     Active Substance: OMEPRAZOLE
     Indication: Gastrointestinal disorder
  6. CARVEDILOL [Concomitant]
     Active Substance: CARVEDILOL
     Indication: Blood pressure measurement

REACTIONS (13)
  - Lower limb fracture [Recovering/Resolving]
  - Road traffic accident [Unknown]
  - Fibula fracture [Unknown]
  - Ankle fracture [Recovering/Resolving]
  - Pelvic fracture [Recovering/Resolving]
  - Cataract [Recovering/Resolving]
  - Hand fracture [Recovering/Resolving]
  - Fractured sacrum [Unknown]
  - Acetabulum fracture [Unknown]
  - Ulna fracture [Unknown]
  - Wrist fracture [Recovering/Resolving]
  - Wheelchair user [Unknown]
  - Weight decreased [Unknown]

NARRATIVE: CASE EVENT DATE: 20240513
